FAERS Safety Report 19716713 (Version 1)
Quarter: 2021Q3

REPORT INFORMATION
  Report Type: Other
  Country: US (occurrence: US)
  Receive Date: 20210818
  Receipt Date: 20210818
  Transmission Date: 20211014
  Serious: No
  Sender: FDA-Public Use
  Company Number: US-ROCHE-2890357

PATIENT
  Sex: Male

DRUGS (1)
  1. OCREVUS [Suspect]
     Active Substance: OCRELIZUMAB
     Indication: MULTIPLE SCLEROSIS
     Dosage: DATE OF TREATMENT : 2021?03?25, 2020?05?14, 2019?10?23, 2019?09?26, 2019?09?23,?2019?04?23, 2018?10?
     Route: 065

REACTIONS (1)
  - COVID-19 [Not Recovered/Not Resolved]
